FAERS Safety Report 16881706 (Version 1)
Quarter: 2019Q4

REPORT INFORMATION
  Report Type: Spontaneous
  Country: US (occurrence: US)
  Receive Date: 20191003
  Receipt Date: 20191003
  Transmission Date: 20200122
  Serious: No
  Sender: FDA-Public Use
  Company Number: US-AVEDRO-AVE-2019-0232-AE

PATIENT
  Age: 20 Year
  Sex: Male

DRUGS (11)
  1. PHOTREXA [Suspect]
     Active Substance: RIBOFLAVIN 5^-PHOSPHATE SODIUM
     Dosage: 2 DROPS EVERY 10 SECONDS FOR 3 MINUTES
     Route: 047
     Dates: start: 20190709, end: 20190709
  2. TETRACAINE. [Concomitant]
     Active Substance: TETRACAINE
     Indication: PRODUCT USED FOR UNKNOWN INDICATION
     Dosage: ONE DROP
     Route: 047
     Dates: start: 20190709, end: 20190709
  3. BETADINE [Concomitant]
     Active Substance: POVIDONE-IODINE
     Indication: PRODUCT USED FOR UNKNOWN INDICATION
     Dosage: 1 DROP TO EYE 50/50 DILUTED BETADINE
     Route: 047
     Dates: start: 20190709, end: 20190709
  4. POVIDONE-IODINE. [Concomitant]
     Active Substance: POVIDONE-IODINE
     Indication: INFECTION PROPHYLAXIS
     Dosage: EYE AND LIDS WERE CLEANED WITH SWABSTICK
     Route: 047
     Dates: start: 20190709, end: 20190709
  5. PHOTREXA VISCOUS [Suspect]
     Active Substance: RIBOFLAVIN 5^-PHOSPHATE SODIUM
     Dosage: 1 DROP EVERY 2 MINUTES FOR 30 MINUTES DURING IRRADIATION PERIOD
     Route: 047
     Dates: start: 20190709, end: 20190709
  6. PHOTREXA [Suspect]
     Active Substance: RIBOFLAVIN 5^-PHOSPHATE SODIUM
     Indication: KERATOCONUS
     Dosage: 2 DROP EVERY 10 SECONDS FOR 3 MINUTES
     Route: 047
     Dates: start: 20190709, end: 20190709
  7. KXL SYSTEM [Suspect]
     Active Substance: DEVICE
     Indication: KERATOCONUS
     Route: 047
     Dates: start: 20190709, end: 20190709
  8. PROPARACAINE [Concomitant]
     Active Substance: PROPARACAINE
     Indication: PRODUCT USED FOR UNKNOWN INDICATION
     Dosage: ONE DROP
     Route: 047
     Dates: start: 20190709, end: 20190709
  9. BALANCED SALT SOLUTION [Concomitant]
     Active Substance: CALCIUM CHLORIDE\MAGNESIUM CHLORIDE\POTASSIUM CHLORIDE\SODIUM ACETATE\SODIUM CHLORIDE\SODIUM CITRATE
     Indication: PRODUCT USED FOR UNKNOWN INDICATION
     Route: 047
     Dates: start: 20190709, end: 20190709
  10. PHOTREXA VISCOUS [Suspect]
     Active Substance: RIBOFLAVIN 5^-PHOSPHATE SODIUM
     Indication: KERATOCONUS
     Dosage: 1 DROP EVERY 2 MINUTES FOR 30 MINUTES DURING INITIAL SOAK PERIOD
     Route: 047
     Dates: start: 20190709, end: 20190709
  11. ALCOHOL. [Concomitant]
     Active Substance: ALCOHOL
     Indication: PRODUCT USED FOR UNKNOWN INDICATION
     Dosage: 20% FOR 20 SECONDS
     Route: 047
     Dates: start: 20190709, end: 20190709

REACTIONS (2)
  - Product use issue [Unknown]
  - No adverse event [Unknown]

NARRATIVE: CASE EVENT DATE: 20190709
